FAERS Safety Report 8415511 (Version 17)
Quarter: 2015Q3

REPORT INFORMATION
  Report Type: Spontaneous
  Country: US (occurrence: US)
  Receive Date: 20120218
  Receipt Date: 20150921
  Transmission Date: 20151125
  Serious: Yes (Death, Hospitalization, Other)
  Sender: FDA-Public Use
  Company Number: US-ALLERGAN-1111360US

PATIENT
  Age: 55 Year
  Sex: Female
  Weight: 74.83 kg

DRUGS (19)
  1. PAXIL [Concomitant]
     Active Substance: PAROXETINE HYDROCHLORIDE
     Indication: PRODUCT USED FOR UNKNOWN INDICATION
     Dosage: 40 MG, QD
  2. VICODIN [Concomitant]
     Active Substance: ACETAMINOPHEN\HYDROCODONE BITARTRATE
     Indication: PRODUCT USED FOR UNKNOWN INDICATION
     Dosage: UNK UNK, PRN
  3. BOTOX [Suspect]
     Active Substance: ONABOTULINUMTOXINA
     Indication: SKIN WRINKLING
     Dosage: 30 UNITS, SINGLE
     Route: 030
     Dates: start: 20071031, end: 20071031
  4. SYNTHROID [Concomitant]
     Active Substance: LEVOTHYROXINE SODIUM
     Indication: HYPOTHYROIDISM
     Dosage: 50 ?G, QD
     Route: 048
  5. PREMARIN [Concomitant]
     Active Substance: ESTROGENS, CONJUGATED
     Indication: PRODUCT USED FOR UNKNOWN INDICATION
     Dosage: 0.45 MG, QD
     Route: 048
     Dates: start: 2009
  6. BOTOX [Suspect]
     Active Substance: ONABOTULINUMTOXINA
     Indication: SKIN WRINKLING
     Dosage: 30 UNITS, SINGLE
     Route: 030
     Dates: start: 20090903, end: 20090903
  7. BOTOX [Suspect]
     Active Substance: ONABOTULINUMTOXINA
     Dosage: 30 UNITS, SINGLE
     Route: 030
     Dates: start: 20031009, end: 20031009
  8. SINGULAIR [Concomitant]
     Active Substance: MONTELUKAST SODIUM
     Indication: PRODUCT USED FOR UNKNOWN INDICATION
     Dosage: 10 MG, UNK
     Route: 048
     Dates: start: 20100518
  9. BOTOX [Suspect]
     Active Substance: ONABOTULINUMTOXINA
     Dosage: 40 UNITS, SINGLE
     Route: 030
     Dates: start: 20051102, end: 20051102
  10. BOTOX [Suspect]
     Active Substance: ONABOTULINUMTOXINA
     Indication: TEMPOROMANDIBULAR JOINT SYNDROME
     Dosage: 60 UNITS, SINGLE
     Route: 030
     Dates: start: 20110525, end: 20110525
  11. TRAZODONE [Concomitant]
     Active Substance: TRAZODONE HYDROCHLORIDE
     Indication: PRODUCT USED FOR UNKNOWN INDICATION
     Dosage: 100 MG, QHS
  12. ZOCOR [Concomitant]
     Active Substance: SIMVASTATIN
     Dosage: UNK UNK, QD
  13. BOTOX [Suspect]
     Active Substance: ONABOTULINUMTOXINA
     Indication: SKIN WRINKLING
     Dosage: 30 UNITS, SINGLE
     Route: 030
     Dates: start: 20100106, end: 20100106
  14. CATAFLAM [Concomitant]
     Active Substance: DICLOFENAC POTASSIUM
     Indication: PRODUCT USED FOR UNKNOWN INDICATION
  15. NEURONTIN [Concomitant]
     Active Substance: GABAPENTIN
     Indication: PRODUCT USED FOR UNKNOWN INDICATION
     Dosage: 400 MG, TID
  16. FLEXERIL [Concomitant]
     Active Substance: CYCLOBENZAPRINE HYDROCHLORIDE
     Indication: PRODUCT USED FOR UNKNOWN INDICATION
     Dosage: UNK UNK, PRN
  17. DIAZEPAM. [Concomitant]
     Active Substance: DIAZEPAM
     Indication: PRODUCT USED FOR UNKNOWN INDICATION
     Dosage: 5 MG, UNK
     Route: 048
  18. ENABLEX [Concomitant]
     Active Substance: DARIFENACIN\DARIFENACIN HYDROBROMIDE
     Indication: PRODUCT USED FOR UNKNOWN INDICATION
  19. PRILOSEC [Concomitant]
     Active Substance: OMEPRAZOLE MAGNESIUM
     Indication: GASTROOESOPHAGEAL REFLUX DISEASE

REACTIONS (24)
  - Acute kidney injury [Unknown]
  - Urinary incontinence [Unknown]
  - Abdominal pain [Unknown]
  - Pain [Unknown]
  - Respiratory arrest [Fatal]
  - Completed suicide [Fatal]
  - Gait disturbance [Not Recovered/Not Resolved]
  - Depression [Not Recovered/Not Resolved]
  - Paraesthesia [Recovering/Resolving]
  - Intentional overdose [Fatal]
  - Suicide attempt [Unknown]
  - Weight decreased [Unknown]
  - Encephalopathy [Unknown]
  - Septic shock [Unknown]
  - Muscle spasms [Not Recovered/Not Resolved]
  - Back pain [Recovering/Resolving]
  - Irritable bowel syndrome [Unknown]
  - Diarrhoea [Unknown]
  - Rhabdomyolysis [Unknown]
  - Pneumonia aspiration [Recovering/Resolving]
  - Off label use [Unknown]
  - Muscle spasms [Recovering/Resolving]
  - Pneumonia [Recovered/Resolved]
  - Muscular weakness [Recovering/Resolving]

NARRATIVE: CASE EVENT DATE: 201107
